FAERS Safety Report 13462660 (Version 2)
Quarter: 2017Q3

REPORT INFORMATION
  Report Type: Report from Study
  Country: US (occurrence: US)
  Receive Date: 20170420
  Receipt Date: 20170817
  Transmission Date: 20171127
  Serious: Yes (Hospitalization, Other)
  Sender: FDA-Public Use
  Company Number: PHEH2017US011516

PATIENT
  Age: 72 Year
  Sex: Male

DRUGS (3)
  1. TRILEPTAL [Suspect]
     Active Substance: OXCARBAZEPINE
     Indication: SEIZURE
     Dosage: 600 MG, BID
     Route: 048
     Dates: start: 20140708
  2. LORAZEPAM. [Concomitant]
     Active Substance: LORAZEPAM
     Indication: PRODUCT USED FOR UNKNOWN INDICATION
     Dosage: 2 MG, UNK
     Route: 042
     Dates: start: 20170404, end: 20170504
  3. DILANTIN [Concomitant]
     Active Substance: PHENYTOIN
     Indication: PRODUCT USED FOR UNKNOWN INDICATION
     Route: 065

REACTIONS (16)
  - Atelectasis [Unknown]
  - Protein urine present [Unknown]
  - Blood urine present [Unknown]
  - Headache [Unknown]
  - Cerebral small vessel ischaemic disease [Unknown]
  - Urine ketone body present [Unknown]
  - Lactic acidosis [Unknown]
  - Diarrhoea [Recovered/Resolved]
  - Myocardial infarction [Not Recovered/Not Resolved]
  - Influenza [Recovered/Resolved with Sequelae]
  - Pulmonary haemorrhage [Unknown]
  - Asthenia [Unknown]
  - Sinusitis [Unknown]
  - Influenza [Unknown]
  - Blood glucose increased [Unknown]
  - Seizure [Unknown]

NARRATIVE: CASE EVENT DATE: 20170104
